FAERS Safety Report 10572049 (Version 1)
Quarter: 2014Q4

REPORT INFORMATION
  Report Type: Spontaneous
  Country: GB (occurrence: GB)
  Receive Date: 20141107
  Receipt Date: 20141107
  Transmission Date: 20150529
  Serious: Yes (Other)
  Sender: FDA-Public Use
  Company Number: GB-BAXTER-2014BAX065409

PATIENT
  Age: 32 Year
  Sex: Female
  Weight: 86.4 kg

DRUGS (9)
  1. TRETINOIN. [Suspect]
     Active Substance: TRETINOIN
     Indication: ACUTE PROMYELOCYTIC LEUKAEMIA
     Route: 065
     Dates: start: 201309
  2. TRISENOX [Suspect]
     Active Substance: ARSENIC TRIOXIDE
     Dosage: WEEK 2-4 TWICE A WEEK
     Route: 065
     Dates: start: 201309
  3. CYCLOPHOSPHAMIDE INJECTION 1G [Suspect]
     Active Substance: CYCLOPHOSPHAMIDE
     Indication: ACUTE PROMYELOCYTIC LEUKAEMIA
     Route: 065
     Dates: start: 201212
  4. IDARUBICIN [Suspect]
     Active Substance: IDARUBICIN
     Indication: ACUTE PROMYELOCYTIC LEUKAEMIA
     Route: 065
     Dates: start: 201309
  5. TRISENOX [Suspect]
     Active Substance: ARSENIC TRIOXIDE
     Indication: ACUTE PROMYELOCYTIC LEUKAEMIA
     Dosage: WEEK 1 FOR 5 DAYS
     Route: 065
     Dates: start: 201309
  6. THIOTEPA. [Suspect]
     Active Substance: THIOTEPA
     Indication: ACUTE PROMYELOCYTIC LEUKAEMIA
     Route: 065
     Dates: start: 201212
  7. MYLOTARG [Suspect]
     Active Substance: GEMTUZUMAB OZOGAMICIN
     Indication: ACUTE PROMYELOCYTIC LEUKAEMIA
     Route: 065
     Dates: start: 201309
  8. TRISENOX [Suspect]
     Active Substance: ARSENIC TRIOXIDE
     Dosage: WEEK 4-8 TREATMENT FREE
     Route: 065
     Dates: start: 201309
  9. BUSULFAN [Suspect]
     Active Substance: BUSULFAN
     Indication: ACUTE PROMYELOCYTIC LEUKAEMIA
     Route: 065
     Dates: start: 201212

REACTIONS (2)
  - Leukaemia recurrent [Unknown]
  - Lower respiratory tract infection fungal [Unknown]

NARRATIVE: CASE EVENT DATE: 201309
